FAERS Safety Report 7920370 (Version 2)
Quarter: 2012Q4

REPORT INFORMATION
  Report Type: 
  Country: ES (occurrence: ES)
  Receive Date: 20110429
  Receipt Date: 20121012
  Transmission Date: 20130627
  Serious: Yes (Other)
  Sender: FDA-Public Use
  Company Number: ES-JNJFOC-20110407715

PATIENT
  Age: 28 Year
  Sex: Female
  Weight: 55 kg

DRUGS (4)
  1. EVRA [Suspect]
     Indication: CONTRACEPTION
     Route: 062
     Dates: start: 20110411, end: 20110419
  2. ALL OTHER THERAPEUTIC PRODUCT [Concomitant]
     Indication: FLUID RETENTION
     Route: 065
  3. COD LIVER OIL [Concomitant]
     Route: 065
  4. YEAST [Concomitant]
     Route: 065

REACTIONS (4)
  - Chest pain [Recovered/Resolved]
  - Dyspnoea [Recovered/Resolved]
  - Gastritis [Recovered/Resolved]
  - Treatment noncompliance [Unknown]
